FAERS Safety Report 10286322 (Version 2)
Quarter: 2014Q3

REPORT INFORMATION
  Report Type: Spontaneous
  Country: US (occurrence: US)
  Receive Date: 20140709
  Receipt Date: 20140715
  Transmission Date: 20150326
  Serious: Yes (Other)
  Sender: FDA-Public Use
  Company Number: US-NAPPMUNDI-USA-2014-0115410

PATIENT
  Sex: Female

DRUGS (3)
  1. BUTRANS [Suspect]
     Active Substance: BUPRENORPHINE
     Indication: BACK PAIN
     Dosage: UNK UNK, WEEKLY
     Route: 062
     Dates: start: 2013
  2. BUTRANS [Suspect]
     Active Substance: BUPRENORPHINE
     Indication: ARTHRALGIA
     Dosage: 20 UNK, UNK
     Route: 048
     Dates: start: 20140312
  3. BUTRANS [Suspect]
     Active Substance: BUPRENORPHINE
     Dosage: UNK
     Route: 062
     Dates: start: 201211

REACTIONS (7)
  - Headache [Unknown]
  - Feeling abnormal [Unknown]
  - Cataract operation [Unknown]
  - Procedural pain [Unknown]
  - Restlessness [Unknown]
  - Drug withdrawal syndrome [Unknown]
  - Insomnia [Unknown]
